FAERS Safety Report 10861286 (Version 1)
Quarter: 2015Q1

REPORT INFORMATION
  Report Type: Spontaneous
  Country: US (occurrence: US)
  Receive Date: 20150224
  Receipt Date: 20150224
  Transmission Date: 20150721
  Serious: Yes (Hospitalization)
  Sender: FDA-Public Use
  Company Number: US-CIPLA LTD.-2015US01442

PATIENT

DRUGS (3)
  1. PREDNISONE. [Suspect]
     Active Substance: PREDNISONE
     Indication: SARCOIDOSIS
  2. RISPERIDONE. [Suspect]
     Active Substance: RISPERIDONE
     Indication: SARCOIDOSIS
  3. METHOTREXATE [Suspect]
     Active Substance: METHOTREXATE
     Indication: SARCOIDOSIS

REACTIONS (5)
  - Confusional state [Unknown]
  - Ischaemic stroke [Unknown]
  - Aggression [Unknown]
  - Delusion [Unknown]
  - Mood altered [Unknown]
